FAERS Safety Report 25904497 (Version 2)
Quarter: 2025Q4

REPORT INFORMATION
  Report Type: Spontaneous
  Country: CN (occurrence: CN)
  Receive Date: 20251010
  Receipt Date: 20251212
  Transmission Date: 20260117
  Serious: Yes (Hospitalization, Other)
  Sender: ACCORD
  Company Number: CN-Accord-507470

PATIENT
  Age: 2 Year
  Sex: Male

DRUGS (1)
  1. TACROLIMUS [Suspect]
     Active Substance: TACROLIMUS
     Indication: Immunosuppressant drug therapy
     Dosage: CONCENTRATION OF TACROLIMUS WAS MAINTAINED AT 8-10 NG/ML

REACTIONS (6)
  - Smooth muscle cell neoplasm [Recovered/Resolved]
  - Epstein-Barr viraemia [Recovering/Resolving]
  - Diarrhoea [Unknown]
  - Epstein-Barr virus associated lymphoproliferative disorder [Recovered/Resolved]
  - Hepatic neoplasm [Recovered/Resolved]
  - Malignant splenic neoplasm [Recovered/Resolved]
